FAERS Safety Report 4735699-3 (Version None)
Quarter: 2005Q3

REPORT INFORMATION
  Report Type: 
  Country: None (occurrence: None)
  Receive Date: 20050802
  Receipt Date: 20050719
  Transmission Date: 20060218
  Serious: Yes (Hospitalization)
  Sender: FDA-Public Use
  Company Number: SUSI-2005-00569

PATIENT
  Sex: Female

DRUGS (2)
  1. PENTASA [Suspect]
     Dosage: 250 MG, 12 PILLS DAILY, ORAL; 500 MG, 6 PILLS/DAY, ORAL
     Route: 048
  2. PENTASA [Suspect]
     Dosage: 250 MG, 12 PILLS DAILY, ORAL; 500 MG, 6 PILLS/DAY, ORAL
     Route: 048

REACTIONS (1)
  - RENAL FAILURE [None]
